FAERS Safety Report 9071065 (Version 1)
Quarter: 2013Q1

REPORT INFORMATION
  Report Type: Spontaneous
  Country: US (occurrence: US)
  Receive Date: 20130206
  Receipt Date: 20130206
  Transmission Date: 20140127
  Serious: No
  Sender: FDA-Public Use
  Company Number: US-ALLERGAN-1208427US

PATIENT
  Age: 50 Year
  Sex: Female

DRUGS (3)
  1. RESTASIS? [Suspect]
     Indication: DRY EYE
     Dosage: 2 GTT, BID
     Route: 047
     Dates: start: 201206
  2. RESTASIS? [Suspect]
     Dosage: 2 GTT, UNK
     Route: 047
  3. METROCREAM ANTIBIOTIC [Concomitant]
     Indication: ROSACEA
     Dosage: UNK

REACTIONS (4)
  - Foreign body sensation in eyes [Recovered/Resolved]
  - Eye pain [Not Recovered/Not Resolved]
  - Ocular hyperaemia [Not Recovered/Not Resolved]
  - Dry eye [Not Recovered/Not Resolved]
